FAERS Safety Report 5403263-9 (Version None)
Quarter: 2007Q3

REPORT INFORMATION
  Report Type: 
  Country: None (occurrence: None)
  Receive Date: 20070801
  Receipt Date: 20070720
  Transmission Date: 20080115
  Serious: Yes (Other)
  Sender: FDA-Public Use
  Company Number: US-PFIZER INC-2007060849

PATIENT
  Sex: Male
  Weight: 113.4 kg

DRUGS (6)
  1. NEURONTIN [Suspect]
     Indication: NEUROPATHY
  2. LYRICA [Suspect]
     Indication: NEUROPATHY
  3. SODIUM [Suspect]
  4. ATENOLOL [Concomitant]
  5. ACCUPRIL [Concomitant]
  6. PROCARDIA XL [Concomitant]

REACTIONS (4)
  - BLOOD CHOLESTEROL DECREASED [None]
  - DRUG INEFFECTIVE [None]
  - NEUROPATHY [None]
  - PAIN [None]
